FAERS Safety Report 13834667 (Version 1)
Quarter: 2017Q3

REPORT INFORMATION
  Report Type: Report from Study
  Country: None (occurrence: US)
  Receive Date: 20170804
  Receipt Date: 20170804
  Transmission Date: 20171127
  Serious: Yes (Hospitalization, Other)
  Sender: FDA-Public Use
  Company Number: US-ABBVIE-17K-163-1955673-00

PATIENT
  Age: 52 Year
  Sex: Male
  Weight: 67.65 kg

DRUGS (9)
  1. LISINOPRIL. [Concomitant]
     Active Substance: LISINOPRIL
     Indication: BLOOD PRESSURE MEASUREMENT
  2. HUMIRA [Suspect]
     Active Substance: ADALIMUMAB
     Indication: RHEUMATOID ARTHRITIS
     Route: 058
     Dates: start: 2010, end: 201704
  3. LASIX [Concomitant]
     Active Substance: FUROSEMIDE
     Indication: POLYURIA
  4. CRESTOR [Concomitant]
     Active Substance: ROSUVASTATIN CALCIUM
     Indication: BLOOD CHOLESTEROL
  5. FOLIC ACID. [Concomitant]
     Active Substance: FOLIC ACID
     Indication: VITAMIN SUPPLEMENTATION
  6. COREG [Concomitant]
     Active Substance: CARVEDILOL
     Indication: CARDIAC DISORDER
  7. BABY ASPIRIN [Concomitant]
     Active Substance: ASPIRIN
     Indication: CARDIAC DISORDER
  8. METHOTREXATE. [Suspect]
     Active Substance: METHOTREXATE
     Indication: PRODUCT USED FOR UNKNOWN INDICATION
     Route: 065
  9. POTASSIUM [Concomitant]
     Active Substance: POTASSIUM
     Indication: MINERAL SUPPLEMENTATION

REACTIONS (9)
  - Myocardial infarction [Recovering/Resolving]
  - Pulmonary fibrosis [Not Recovered/Not Resolved]
  - Pulmonary oedema [Recovering/Resolving]
  - Cardiac failure congestive [Recovering/Resolving]
  - Syncope [Recovering/Resolving]
  - Pneumonia [Recovered/Resolved]
  - Cardio-respiratory arrest [Recovering/Resolving]
  - Mitral valve disease [Not Recovered/Not Resolved]
  - Weight decreased [Recovered/Resolved]

NARRATIVE: CASE EVENT DATE: 201703
